FAERS Safety Report 6742274-8 (Version None)
Quarter: 2010Q2

REPORT INFORMATION
  Report Type: 
  Country: None (occurrence: None)
  Receive Date: 20100524
  Receipt Date: 20091001
  Transmission Date: 20101027
  Serious: Yes (Hospitalization)
  Sender: FDA-Public Use
  Company Number: 2009SP024537

PATIENT
  Age: 55 Year
  Sex: Male

DRUGS (16)
  1. DEXAMETHASONE [Suspect]
     Indication: PROSTATE CANCER
     Dates: start: 20090220, end: 20090227
  2. PREDNISONE [Suspect]
     Indication: PROSTATE CANCER
     Dates: start: 20090220, end: 20090227
  3. SERETIDE [Concomitant]
  4. INTAL [Concomitant]
  5. COVERSYL [Concomitant]
  6. TRAMAL [Concomitant]
  7. NULYTELY [Concomitant]
  8. PANADOL [Concomitant]
  9. NAVOBAN [Concomitant]
  10. MAXOLON [Concomitant]
  11. ZOFRAN [Concomitant]
  12. KYTRIL [Concomitant]
  13. STEMETIL [Concomitant]
  14. OXYCONTIN [Concomitant]
  15. IMODIUM [Concomitant]
  16. ELIGARD [Concomitant]

REACTIONS (4)
  - DIARRHOEA [None]
  - HYPOPHAGIA [None]
  - INCONTINENCE [None]
  - NAUSEA [None]
